FAERS Safety Report 15298417 (Version 1)
Quarter: 2018Q3

REPORT INFORMATION
  Report Type: Spontaneous
  Country: US (occurrence: US)
  Receive Date: 20180820
  Receipt Date: 20180820
  Transmission Date: 20181010
  Serious: Yes (Hospitalization)
  Sender: FDA-Public Use
  Company Number: US-B.I. PHARMACEUTICALS,INC./RIDGEFIELD-2018-BI-040995

PATIENT
  Age: 81 Year
  Sex: Female

DRUGS (12)
  1. COLACE [Concomitant]
     Active Substance: DOCUSATE SODIUM
     Indication: PRODUCT USED FOR UNKNOWN INDICATION
     Route: 065
  2. PRADAXA [Suspect]
     Active Substance: DABIGATRAN ETEXILATE MESYLATE
     Indication: THROMBOSIS
     Dosage: FORMULATION: CAPSULE? ADMINISTRATION CORRECT? YES ?ACTION(S) TAKEN WITH PRODUCT: DRUG REDUCED
     Route: 048
     Dates: start: 2010
  3. MELATONIN [Concomitant]
     Active Substance: MELATONIN
     Indication: PRODUCT USED FOR UNKNOWN INDICATION
     Route: 065
  4. SIMVASTATIN. [Concomitant]
     Active Substance: SIMVASTATIN
     Indication: PRODUCT USED FOR UNKNOWN INDICATION
     Route: 065
  5. PRADAXA [Suspect]
     Active Substance: DABIGATRAN ETEXILATE MESYLATE
     Dosage: ONE CAPSULE M?W?F; ALL OTHER DAYS ONE CAPSULE BID;  FORM STRENGTH: 150MG; FORMULATION: CAPSULE
     Route: 048
     Dates: start: 2017
  6. HYDROCHLOROTHIAZIDE. [Concomitant]
     Active Substance: HYDROCHLOROTHIAZIDE
     Indication: HYPERTENSION
     Dosage: ONE CAPLET TWO DAYS A WEEK;  FORM STRENGTH: 50MG; FORMULATION: CAPLET
     Route: 048
  7. LEVOTHYROXINE. [Concomitant]
     Active Substance: LEVOTHYROXINE
     Indication: HYPOTHYROIDISM
     Dosage: ONE CAPLET DAILY;  FORM STRENGTH: 150MCG; FORMULATION: CAPLET
     Route: 048
  8. AMLODIPINE [Concomitant]
     Active Substance: AMLODIPINE BESYLATE
     Indication: HYPERTENSION
     Dosage: FORM STRENGTH: 5MG; FORMULATION: CAPLET
     Route: 048
  9. FLUOXETINE [Concomitant]
     Active Substance: FLUOXETINE HYDROCHLORIDE
     Indication: ANXIETY
     Dosage: ONE CAPLET DAILY;  FORM STRENGTH: 20MG; FORMULATION: CAPLET
     Route: 048
  10. ALLOPURINOL. [Concomitant]
     Active Substance: ALLOPURINOL
     Indication: GOUT
     Dosage: FORM STRENGTH: 100MG; FORMULATION: CAPLET
     Route: 048
     Dates: start: 201712
  11. PLAVIX [Concomitant]
     Active Substance: CLOPIDOGREL BISULFATE
     Indication: CARDIOVASCULAR DISORDER
     Dosage: ONE CAPLET DAILY;  FORM STRENGTH: 75MG; FORMULATION: CAPLET
     Route: 048
  12. OMEPRAZOLE. [Concomitant]
     Active Substance: OMEPRAZOLE
     Indication: HIATUS HERNIA
     Dosage: ONE CAPLET BID;  FORM STRENGTH: 40MG; FORMULATION: CAPLET
     Route: 048

REACTIONS (7)
  - Gout [Unknown]
  - Inguinal hernia [Unknown]
  - Peripheral vascular disorder [Recovered/Resolved]
  - Haemorrhoidal haemorrhage [Unknown]
  - Peripheral vascular disorder [Recovered/Resolved]
  - Peripheral vascular disorder [Unknown]
  - Osteomyelitis [Recovered/Resolved]

NARRATIVE: CASE EVENT DATE: 201711
